FAERS Safety Report 9964508 (Version 1)
Quarter: 2014Q1

REPORT INFORMATION
  Report Type: Spontaneous
  Country: MX (occurrence: MX)
  Receive Date: 20140305
  Receipt Date: 20140305
  Transmission Date: 20141002
  Serious: Yes (Other)
  Sender: FDA-Public Use
  Company Number: PHHY2014MX026786

PATIENT
  Age: 72 Year
  Sex: Female

DRUGS (5)
  1. CO-DIOVAN [Suspect]
     Indication: HYPERTENSION
     Dosage: 2 DF (160/12.5MG), QD (IN THE MORNING)
     Route: 048
     Dates: start: 201102
  2. CO-DIOVAN [Suspect]
     Dosage: 1 DF (160/12.5MG), QD (IN THE MORNING)
     Route: 048
  3. CO-DIOVAN [Suspect]
     Dosage: 0.5 DF (160/12.5MG), DAILY
     Route: 048
  4. CO-DIOVAN [Suspect]
     Dosage: 1 DF (160/12.5MG), DAILY
     Route: 048
  5. PHARMATON CAPSULES [Concomitant]
     Indication: METABOLIC DISORDER
     Dosage: UNK UKN, DAILY
     Dates: start: 201402

REACTIONS (12)
  - Thrombosis [Recovered/Resolved]
  - Blood pressure increased [Recovered/Resolved]
  - Memory impairment [Unknown]
  - Malaise [Unknown]
  - Feeling abnormal [Recovered/Resolved]
  - Disorientation [Recovered/Resolved]
  - Blood pressure abnormal [Unknown]
  - Blood cholesterol increased [Not Recovered/Not Resolved]
  - Blood triglycerides increased [Not Recovered/Not Resolved]
  - Asthenia [Recovered/Resolved]
  - Wrong technique in drug usage process [Recovered/Resolved]
  - Drug prescribing error [Unknown]
